FAERS Safety Report 10401161 (Version 3)
Quarter: 2014Q3

REPORT INFORMATION
  Report Type: Report from Study
  Country: PL (occurrence: PL)
  Receive Date: 20140822
  Receipt Date: 20140903
  Transmission Date: 20150326
  Serious: No
  Sender: FDA-Public Use
  Company Number: PL-ROCHE-1433892

PATIENT
  Age: 46 Year
  Sex: Male
  Weight: 104.5 kg

DRUGS (5)
  1. VEMURAFENIB [Suspect]
     Active Substance: VEMURAFENIB
     Indication: METASTATIC MALIGNANT MELANOMA
     Dosage: MOST RECENT DOSE ON 08/JUL/2014
     Route: 048
     Dates: start: 20140411
  2. SIOFOR [Concomitant]
     Active Substance: METFORMIN HYDROCHLORIDE
     Route: 065
     Dates: start: 201110
  3. DIAPREL [Concomitant]
     Active Substance: GLICLAZIDE
     Route: 065
     Dates: start: 201110
  4. NEBILET [Concomitant]
     Active Substance: NEBIVOLOL
     Route: 065
     Dates: start: 201110
  5. POLPRIL [Concomitant]
     Active Substance: RAMIPRIL
     Route: 065
     Dates: start: 201110

REACTIONS (1)
  - Dermal cyst [Recovered/Resolved]

NARRATIVE: CASE EVENT DATE: 20140708
